FAERS Safety Report 8315630 (Version 6)
Quarter: 2013Q1

REPORT INFORMATION
  Report Type: Spontaneous
  Country: US (occurrence: US)
  Receive Date: 20111229
  Receipt Date: 20130328
  Transmission Date: 20140127
  Serious: Yes (Hospitalization, Other)
  Sender: FDA-Public Use
  Company Number: US-ROCHE-801823

PATIENT
  Age: 32 None
  Sex: Female
  Weight: 54.48 kg

DRUGS (2)
  1. ACCUTANE [Suspect]
     Indication: ACNE
     Route: 065
     Dates: start: 20020530, end: 200210
  2. ORTHO TRI CYCLEN [Concomitant]

REACTIONS (8)
  - Crohn^s disease [Unknown]
  - Small intestinal obstruction [Recovered/Resolved]
  - Clostridium difficile colitis [Unknown]
  - Inflammatory bowel disease [Unknown]
  - Depression [Unknown]
  - Irritable bowel syndrome [Unknown]
  - Lip dry [Unknown]
  - Dry skin [Unknown]
